FAERS Safety Report 23968250 (Version 1)
Quarter: 2024Q2

REPORT INFORMATION
  Report Type: Spontaneous
  Country: US (occurrence: US)
  Receive Date: 20240612
  Receipt Date: 20240612
  Transmission Date: 20240715
  Serious: No
  Sender: FDA-Public Use
  Company Number: US-PERRIGO-24US001953

PATIENT
  Age: 92 Year
  Sex: Male
  Weight: 79.365 kg

DRUGS (3)
  1. DICLOFENAC SODIUM [Suspect]
     Active Substance: DICLOFENAC\DICLOFENAC SODIUM
     Indication: Arthritis
     Dosage: UNKNOWN, QHS
     Route: 061
     Dates: start: 20240122
  2. DICLOFENAC SODIUM [Suspect]
     Active Substance: DICLOFENAC\DICLOFENAC SODIUM
     Indication: Groin pain
     Dosage: UNKNOWN, SINGLE
     Route: 061
     Dates: start: 20240220, end: 20240220
  3. XARELTO [Concomitant]
     Active Substance: RIVAROXABAN
     Indication: Vascular graft
     Dosage: UNK
     Route: 065
     Dates: start: 2004

REACTIONS (3)
  - Drug effective for unapproved indication [Unknown]
  - Product administered at inappropriate site [Recovered/Resolved]
  - Incorrect product administration duration [Unknown]

NARRATIVE: CASE EVENT DATE: 20240122
